FAERS Safety Report 5305819-0 (Version None)
Quarter: 2007Q2

REPORT INFORMATION
  Report Type: 
  Country: None (occurrence: None)
  Receive Date: 20070424
  Receipt Date: 20070411
  Transmission Date: 20071010
  Serious: Yes (Other)
  Sender: FDA-Public Use
  Company Number: FR-ELI_LILLY_AND_COMPANY-FR200704002590

PATIENT
  Age: 72 Year
  Sex: Female
  Weight: 43.5 kg

DRUGS (3)
  1. FORTEO [Suspect]
     Indication: OSTEOPOROSIS
     Dosage: 20 UG, DAILY (1/D)
     Route: 058
     Dates: start: 20061016
  2. SEROPRAM [Concomitant]
     Indication: DEPRESSION
     Dosage: 1 D/F, DAILY (1/D)
     Dates: start: 20061002
  3. ACETAMINOPHEN AND TRAMADOL HCL [Concomitant]
     Indication: PAIN
     Dosage: 2 D/F, DAILY (1/D)
     Route: 048

REACTIONS (5)
  - ANOREXIA [None]
  - DEPRESSION [None]
  - FATIGUE [None]
  - LAZINESS [None]
  - WEIGHT DECREASED [None]
